FAERS Safety Report 5121099-3 (Version None)
Quarter: 2006Q4

REPORT INFORMATION
  Report Type: 
  Country: None (occurrence: None)
  Receive Date: 20061002
  Receipt Date: 20060919
  Transmission Date: 20070319
  Serious: Yes (Hospitalization)
  Sender: FDA-Public Use
  Company Number: 2006113008

PATIENT
  Age: 81 Year
  Sex: Female

DRUGS (9)
  1. LYRICA [Suspect]
     Dosage: 600 MG (1 D), ORAL
     Route: 048
     Dates: start: 20060718, end: 20060719
  2. ACETAMINOPHEN AND TRAMADOL HCL [Suspect]
     Dosage: (1 D), ORAL
     Route: 048
     Dates: start: 20060718, end: 20060719
  3. TIANEPTINE  (TIANEPTINE) [Concomitant]
  4. OXYBUTYNIN CHLORIDE [Concomitant]
  5. BENFLUOREX HYDROCHLORIDE [Concomitant]
  6. PERINDOPRIL ERBUMINE [Concomitant]
  7. BAMBUTEROL HYDROCHLORIDE [Concomitant]
  8. MONTELUKAST SODIUM [Concomitant]
  9. ESOMEPRAZOLE MAGNESIUM [Concomitant]

REACTIONS (3)
  - CONFUSIONAL STATE [None]
  - FALL [None]
  - SOMNOLENCE [None]
